FAERS Safety Report 6075544 (Version 2)
Quarter: 2019Q1

REPORT INFORMATION
  Report Type: Spontaneous
  Country: FR (occurrence: FR)
  Receive Date: 20060630
  Receipt Date: 20190201
  Transmission Date: 20190418
  Serious: Yes (Hospitalization)
  Sender: FDA-Public Use
  Company Number: FR-GILEAD-2006-0009794

PATIENT
  Age: 51 Year
  Sex: Male
  Weight: 58 kg

DRUGS (12)
  1. MOTILIUM [Concomitant]
     Active Substance: DOMPERIDONE
  2. SUSTIVA [Suspect]
     Active Substance: EFAVIRENZ
     Indication: HIV INFECTION
     Dosage: UNK
     Route: 048
     Dates: start: 20050420, end: 20060514
  3. MOPRAL [Concomitant]
     Active Substance: OMEPRAZOLE
  4. COMBIVIR [Concomitant]
     Active Substance: LAMIVUDINE\ZIDOVUDINE
  5. PROGRAF [Suspect]
     Active Substance: TACROLIMUS\TACROLIMUS ANHYDROUS
     Indication: TRANSPLANT
     Dosage: 5.5 MG, QOD
     Route: 048
     Dates: start: 20050303, end: 20060514
  6. ACTONEL [Concomitant]
     Active Substance: RISEDRONATE SODIUM
  7. ACTISKENAN [Concomitant]
     Active Substance: MORPHINE SULFATE
  8. NELFINAVIR [Concomitant]
     Active Substance: NELFINAVIR
  9. VIREAD [Suspect]
     Active Substance: TENOFOVIR DISOPROXIL FUMARATE
     Indication: HIV INFECTION
     Dosage: 300 MG, QD
     Route: 048
     Dates: start: 20050613
  10. AMAREL [Concomitant]
     Active Substance: GLIMEPIRIDE
  11. DUROGESIC [Concomitant]
     Active Substance: FENTANYL
  12. TARDYFERON [Concomitant]
     Active Substance: FERROUS SULFATE

REACTIONS (1)
  - Gynaecomastia [Recovering/Resolving]

NARRATIVE: CASE EVENT DATE: 20051215
